FAERS Safety Report 9306601 (Version 2)
Quarter: 2013Q2

REPORT INFORMATION
  Report Type: Report from Study
  Country: US (occurrence: US)
  Receive Date: 20130523
  Receipt Date: 20130528
  Transmission Date: 20140414
  Serious: Yes (Death, Hospitalization, Other)
  Sender: FDA-Public Use
  Company Number: US-BAYER-2013-014117

PATIENT
  Age: 43 Year
  Sex: Male
  Weight: 62 kg

DRUGS (13)
  1. STIVARGA [Suspect]
     Indication: RECTAL CANCER
     Dosage: UNK
     Dates: start: 20130116
  2. STIVARGA [Suspect]
     Indication: RECTAL CANCER
     Dosage: DAILY DOSE 160 MG
     Route: 048
     Dates: start: 20130121, end: 20130301
  3. PROTONIX [Concomitant]
     Dosage: 40 MG, UNK
     Route: 048
  4. EMLA [Concomitant]
     Route: 061
  5. IMODIUM [Concomitant]
     Dosage: UNK UNK, PRN
     Route: 048
  6. LACTULOSE [Concomitant]
  7. LOMOTIL [DIPHENOXYLATE HYDROCHLORIDE] [Concomitant]
  8. LUMIGAN [Concomitant]
  9. MAGNESIUM OXIDE [Concomitant]
     Dosage: 400 MG, UNK
     Route: 048
  10. MINOCYCLINE [Concomitant]
  11. PANOXYL [Concomitant]
  12. PREDNISONE [Concomitant]
  13. PROMETHAZINE [Concomitant]
     Route: 048

REACTIONS (23)
  - Colon cancer metastatic [Fatal]
  - Rash papular [None]
  - General physical health deterioration [None]
  - Asthenia [None]
  - Tremor [None]
  - Oedema peripheral [None]
  - Abdominal pain [None]
  - Diarrhoea [None]
  - Dry skin [None]
  - Skin exfoliation [None]
  - Weight decreased [None]
  - General physical health deterioration [None]
  - Anaemia [None]
  - Cachexia [None]
  - Proctalgia [None]
  - Nocturia [None]
  - Disorientation [None]
  - Dehydration [None]
  - Pain [None]
  - Pulmonary mass [None]
  - Lymphadenopathy [None]
  - Metastases to liver [None]
  - Rectal cancer stage IV [None]
